FAERS Safety Report 13718264 (Version 1)
Quarter: 2017Q3

REPORT INFORMATION
  Report Type: Spontaneous
  Country: FR (occurrence: FR)
  Receive Date: 20170705
  Receipt Date: 20170705
  Transmission Date: 20171127
  Serious: Yes (Hospitalization)
  Sender: FDA-Public Use
  Company Number: FR-PFIZER INC-2017282371

PATIENT
  Age: 44 Year
  Sex: Male

DRUGS (8)
  1. CARBOPLATINE HOSPIRA [Suspect]
     Active Substance: CARBOPLATIN
     Dosage: 1950 MG (TOTAL DOSE)
     Route: 042
     Dates: start: 20170308, end: 20170311
  2. CARBOPLATINE HOSPIRA [Suspect]
     Active Substance: CARBOPLATIN
     Dosage: UNK
     Route: 042
     Dates: start: 20170203, end: 20170207
  3. AVASTIN [Suspect]
     Active Substance: BEVACIZUMAB
     Dosage: 575 MG, SINGLE
     Route: 042
     Dates: start: 20170307, end: 20170307
  4. ETOPOSIDE. [Suspect]
     Active Substance: ETOPOSIDE
     Dosage: UNK
     Route: 042
     Dates: start: 20170203, end: 20170207
  5. ETOPOSIDE. [Suspect]
     Active Substance: ETOPOSIDE
     Dosage: 280 MG, 2X/DAY
     Route: 042
     Dates: start: 20170308, end: 20170311
  6. HOLOXAN [Suspect]
     Active Substance: IFOSFAMIDE
     Dosage: 4500 MG, DAILY
     Route: 042
     Dates: start: 20170308, end: 20170311
  7. AVASTIN [Suspect]
     Active Substance: BEVACIZUMAB
     Dosage: UNK
     Route: 042
     Dates: start: 20170202, end: 20170202
  8. HOLOXAN [Suspect]
     Active Substance: IFOSFAMIDE
     Dosage: UNK
     Route: 042
     Dates: start: 20170203, end: 20170207

REACTIONS (2)
  - Cerebral haematoma [Unknown]
  - Posterior reversible encephalopathy syndrome [Unknown]

NARRATIVE: CASE EVENT DATE: 20170323
